FAERS Safety Report 10776977 (Version 2)
Quarter: 2015Q1

REPORT INFORMATION
  Report Type: Spontaneous
  Country: US (occurrence: US)
  Receive Date: 20150209
  Receipt Date: 20150309
  Transmission Date: 20150721
  Serious: Yes (Hospitalization)
  Sender: FDA-Public Use
  Company Number: US-BAYER-2015-019351

PATIENT
  Age: 27 Year
  Sex: Female
  Weight: 83.9 kg

DRUGS (3)
  1. DEPO-PROVERA [Concomitant]
     Active Substance: MEDROXYPROGESTERONE ACETATE
  2. METRONIDAZOLE. [Concomitant]
     Active Substance: METRONIDAZOLE
     Indication: VAGINITIS BACTERIAL
     Dosage: UNK
     Dates: start: 2008, end: 2013
  3. MIRENA [Suspect]
     Active Substance: LEVONORGESTREL
     Dosage: 20 MCG/24HR, CONT
     Route: 015
     Dates: start: 20080418, end: 20130619

REACTIONS (14)
  - Internal injury [None]
  - Medical device discomfort [None]
  - Depression [None]
  - Off label use [None]
  - Genital haemorrhage [None]
  - Injury [None]
  - Anxiety [None]
  - Pelvic pain [None]
  - Emotional distress [None]
  - Uterine perforation [None]
  - Device difficult to use [None]
  - Abdominal pain [None]
  - Depressed mood [None]
  - Fear [None]

NARRATIVE: CASE EVENT DATE: 201302
